FAERS Safety Report 6507570-8 (Version None)
Quarter: 2009Q4

REPORT INFORMATION
  Report Type: 
  Country: None (occurrence: None)
  Receive Date: 20091216
  Receipt Date: 20091201
  Transmission Date: 20100525
  Serious: Yes (Death, Hospitalization)
  Sender: FDA-Public Use
  Company Number: 163

PATIENT
  Age: 75 Year
  Sex: Male
  Weight: 55.7924 kg

DRUGS (8)
  1. FAZACLO ODT [Suspect]
     Indication: SCHIZOPHRENIA
     Dosage: 25 MG PO DAILY
     Route: 048
     Dates: start: 20050518, end: 20070806
  2. PLAVIX [Concomitant]
  3. HALDOL [Concomitant]
  4. LACTULOSE [Concomitant]
  5. MEGACE [Concomitant]
  6. M.V.I. [Concomitant]
  7. TYLEENOL PRN [Concomitant]
  8. MOM [Concomitant]

REACTIONS (2)
  - HYPOXIA [None]
  - LUNG NEOPLASM MALIGNANT [None]
